FAERS Safety Report 16431599 (Version 1)
Quarter: 2019Q2

REPORT INFORMATION
  Report Type: Spontaneous
  Country: US (occurrence: US)
  Receive Date: 20190507
  Receipt Date: 20190507
  Transmission Date: 20190711
  Serious: No
  Sender: FDA-Public Use
  Company Number: None

PATIENT
  Age: 59 Year
  Sex: Female
  Weight: 106.2 kg

DRUGS (10)
  1. METHADONE [Concomitant]
     Active Substance: METHADONE HYDROCHLORIDE
  2. MAVYRET [Suspect]
     Active Substance: GLECAPREVIR\PIBRENTASVIR
     Indication: HEPATITIS C
     Dosage: ?          OTHER DOSE:50MG/100MG;?
     Route: 048
     Dates: start: 20181017, end: 20181024
  3. NARCAN [Concomitant]
     Active Substance: NALOXONE HYDROCHLORIDE
  4. ZANTAC [Concomitant]
     Active Substance: RANITIDINE HYDROCHLORIDE
  5. NORVASC [Concomitant]
     Active Substance: AMLODIPINE BESYLATE
  6. MAVYRET [Suspect]
     Active Substance: GLECAPREVIR\PIBRENTASVIR
     Route: 048
  7. LYRICA [Concomitant]
     Active Substance: PREGABALIN
  8. VIBRAMYCIN [Concomitant]
     Active Substance: DOXYCYCLINE
  9. LISINOPRIL. [Concomitant]
     Active Substance: LISINOPRIL
  10. COREG [Concomitant]
     Active Substance: CARVEDILOL

REACTIONS (3)
  - Localised infection [None]
  - Diabetes mellitus [None]
  - Pyrexia [None]

NARRATIVE: CASE EVENT DATE: 20181017
